FAERS Safety Report 25537931 (Version 2)
Quarter: 2025Q3

REPORT INFORMATION
  Report Type: Spontaneous
  Country: US (occurrence: US)
  Receive Date: 20250710
  Receipt Date: 20250721
  Transmission Date: 20251020
  Serious: No
  Sender: CSL Plasma
  Company Number: US-CSLP-17910385685-V11875445-49

PATIENT
  Age: 31 Year
  Sex: Female

DRUGS (2)
  1. ANTICOAGULANT SODIUM CITRATE [Suspect]
     Active Substance: SODIUM CITRATE
     Indication: Anticoagulant therapy
     Route: 050
     Dates: start: 20250625, end: 20250625
  2. IBUPROFEN [Concomitant]
     Active Substance: IBUPROFEN
     Indication: Headache

REACTIONS (6)
  - Abdominal pain [Recovered/Resolved]
  - Hypoaesthesia oral [Recovered/Resolved]
  - Anal incontinence [Recovered/Resolved]
  - Cold sweat [Recovered/Resolved]
  - Urinary incontinence [Recovered/Resolved]
  - Paraesthesia oral [Recovered/Resolved]

NARRATIVE: CASE EVENT DATE: 20250625
